FAERS Safety Report 23352910 (Version 1)
Quarter: 2023Q4

REPORT INFORMATION
  Report Type: Spontaneous
  Country: AU (occurrence: AU)
  Receive Date: 20231230
  Receipt Date: 20231230
  Transmission Date: 20240110
  Serious: Yes (Other)
  Sender: FDA-Public Use
  Company Number: AU-MLMSERVICE-20231215-4722449-2

PATIENT
  Age: 58 Year
  Sex: Female

DRUGS (5)
  1. METHOTREXATE [Suspect]
     Active Substance: METHOTREXATE
     Indication: Synovitis
     Dosage: INCREASED
     Dates: start: 202107, end: 202210
  2. USTEKINUMAB [Concomitant]
     Active Substance: USTEKINUMAB
     Indication: Inflammatory bowel disease
  3. PREDNISOLONE [Concomitant]
     Active Substance: PREDNISOLONE
     Indication: Synovitis
  4. PREDNISOLONE [Concomitant]
     Active Substance: PREDNISOLONE
     Indication: Synovitis
     Dosage: SHORT COURSES OF LOW-DOSE
     Dates: start: 202107
  5. METHOTREXATE [Suspect]
     Active Substance: METHOTREXATE
     Indication: Synovitis
     Dates: start: 202003

REACTIONS (3)
  - Ankle fracture [Recovered/Resolved]
  - Foot fracture [Recovered/Resolved]
  - Off label use [Unknown]

NARRATIVE: CASE EVENT DATE: 20200301
